FAERS Safety Report 8089957-8 (Version None)
Quarter: 2012Q1

REPORT INFORMATION
  Report Type: 
  Country: None (occurrence: None)
  Receive Date: 20120129
  Receipt Date: 20110922
  Transmission Date: 20120608
  Serious: No
  Sender: FDA-Public Use
  Company Number: US-ABBOTT-11P-163-0857218-00

PATIENT
  Age: 23 Year
  Sex: Male

DRUGS (3)
  1. APRISO [Concomitant]
     Indication: PRODUCT USED FOR UNKNOWN INDICATION
  2. PREDNISONE TAB [Concomitant]
     Indication: PRODUCT USED FOR UNKNOWN INDICATION
  3. HUMIRA [Suspect]
     Indication: COLITIS ULCERATIVE
     Dosage: SHOULD OF BEEN 40MG QOW AS ORDERED
     Dates: start: 20110822

REACTIONS (1)
  - INCORRECT DOSE ADMINISTERED [None]
